FAERS Safety Report 24910896 (Version 1)
Quarter: 2025Q1

REPORT INFORMATION
  Report Type: Spontaneous
  Country: US (occurrence: US)
  Receive Date: 20250131
  Receipt Date: 20250131
  Transmission Date: 20250409
  Serious: Yes (Death, Other)
  Sender: SANDOZ
  Company Number: US-SANDOZ-SDZ2025US005855

PATIENT
  Age: 63 Year
  Sex: Male

DRUGS (1)
  1. ZIEXTENZO [Suspect]
     Active Substance: PEGFILGRASTIM-BMEZ
     Indication: Lung neoplasm malignant
     Dosage: 6 MG Q3W
     Route: 065
     Dates: start: 20241219

REACTIONS (1)
  - Death [Fatal]

NARRATIVE: CASE EVENT DATE: 20241226
